FAERS Safety Report 7287381-9 (Version None)
Quarter: 2011Q1

REPORT INFORMATION
  Report Type: 
  Country: None (occurrence: None)
  Receive Date: 20110208
  Receipt Date: 20110208
  Transmission Date: 20110831
  Serious: No
  Sender: FDA-Public Use
  Company Number: None

PATIENT
  Sex: Female
  Weight: 54.5 kg

DRUGS (3)
  1. OMNIPAQUE 70 [Suspect]
     Indication: HODGKIN'S DISEASE
     Dosage: 30-35 ML 2ML/SEC INTRAVENOUS
     Route: 042
     Dates: start: 20110207
  2. MEDRAD ENVISION CT INJECTOR [Concomitant]
  3. BD NEXEVA 22 GUAGE CLOSED IV CATHETER SYSTEM [Concomitant]

REACTIONS (2)
  - INJECTION SITE EXTRAVASATION [None]
  - MEDICAL DEVICE COMPLICATION [None]
